FAERS Safety Report 8967691 (Version 2)
Quarter: 2013Q1

REPORT INFORMATION
  Report Type: Spontaneous
  Country: US (occurrence: None)
  Receive Date: 20121206
  Receipt Date: 20121221
  Transmission Date: 20140127
  Serious: Yes (Other)
  Sender: FDA-Public Use
  Company Number: DSA_60194_2012

PATIENT
  Age: 42 Year
  Sex: Male

DRUGS (1)
  1. XENAZINE 25 MG (NOT SPECIFIED) [Suspect]
     Indication: HUNTINGTON^S DISEASE
     Route: 048

REACTIONS (6)
  - Fall [None]
  - Head injury [None]
  - Nausea [None]
  - Laceration [None]
  - Mobility decreased [None]
  - Pain [None]
